FAERS Safety Report 26116726 (Version 1)
Quarter: 2025Q4

REPORT INFORMATION
  Report Type: Spontaneous
  Country: EU (occurrence: EU)
  Receive Date: 20251203
  Receipt Date: 20251203
  Transmission Date: 20260117
  Serious: Yes (Other)
  Sender: ACCORD
  Company Number: None

PATIENT
  Age: 74 Year
  Sex: Male
  Weight: 75 kg

DRUGS (7)
  1. BICALUTAMIDE [Suspect]
     Active Substance: BICALUTAMIDE
     Indication: Prostate cancer
     Dosage: 1 TABLET 24/24 HOURS
     Dates: start: 20250303
  2. EDOXABAN [Concomitant]
     Active Substance: EDOXABAN
     Dosage: STRENGTH: 60 MG
  3. ATORVASTATIN [Concomitant]
     Active Substance: ATORVASTATIN
     Dosage: STRENGTH: 10 MG
  4. DAPAGLIFLOZIN [Concomitant]
     Active Substance: DAPAGLIFLOZIN
     Dosage: STRENGTH: 10 MG
  5. AMLODIPINE\CANDESARTAN CILEXETIL [Concomitant]
     Active Substance: AMLODIPINE\CANDESARTAN CILEXETIL
     Dosage: STRENGTH: 5 MG, 8 MG
  6. INDAPAMIDE [Concomitant]
     Active Substance: INDAPAMIDE
     Dosage: STRENGTH: 1.5 MG
  7. BISOPROLOL [Concomitant]
     Active Substance: BISOPROLOL
     Dosage: STRENGTH: 5 MG

REACTIONS (2)
  - Joint stiffness [Not Recovered/Not Resolved]
  - Musculoskeletal stiffness [Not Recovered/Not Resolved]

NARRATIVE: CASE EVENT DATE: 20250316
